FAERS Safety Report 14430377 (Version 1)
Quarter: 2018Q1

REPORT INFORMATION
  Report Type: Spontaneous
  Country: US (occurrence: US)
  Receive Date: 20180123
  Receipt Date: 20180123
  Transmission Date: 20180509
  Serious: Yes (Other)
  Sender: FDA-Public Use
  Company Number: None

PATIENT
  Sex: Male
  Weight: 18.9 kg

DRUGS (1)
  1. SABRIL [Suspect]
     Active Substance: VIGABATRIN
     Indication: INFANTILE SPASMS
     Dosage: 1 TABLESPOON(S); TWICE A DAY; ORAL?
     Route: 048
     Dates: start: 20140304, end: 20160823

REACTIONS (3)
  - Blindness [None]
  - Vision blurred [None]
  - Tunnel vision [None]

NARRATIVE: CASE EVENT DATE: 20180123
